FAERS Safety Report 23717713 (Version 1)
Quarter: 2024Q2

REPORT INFORMATION
  Report Type: Spontaneous
  Country: US (occurrence: None)
  Receive Date: 20240405
  Receipt Date: 20240405
  Transmission Date: 20240716
  Serious: No
  Sender: FDA-Public Use
  Company Number: None

PATIENT
  Age: 34 Year
  Sex: Female
  Weight: 65.25 kg

DRUGS (2)
  1. EMTRICITABINE [Suspect]
     Active Substance: EMTRICITABINE
     Indication: Injury associated with device
     Dosage: 1 TABLET DAILY ORAL?
     Route: 048
     Dates: start: 20240325, end: 20240329
  2. EMTRICITABINE [Suspect]
     Active Substance: EMTRICITABINE
     Indication: Accidental exposure to product

REACTIONS (3)
  - Trigeminal neuralgia [None]
  - Herpes zoster [None]
  - Adverse drug reaction [None]

NARRATIVE: CASE EVENT DATE: 20240326
